FAERS Safety Report 7984091-7 (Version None)
Quarter: 2011Q4

REPORT INFORMATION
  Report Type: 
  Country: None (occurrence: None)
  Receive Date: 20111216
  Receipt Date: 20111202
  Transmission Date: 20120403
  Serious: Yes (Hospitalization)
  Sender: FDA-Public Use
  Company Number: IT-PFIZER INC-2011269907

PATIENT
  Age: 82 Year
  Sex: Female

DRUGS (6)
  1. LASIX [Suspect]
     Indication: HYPERTENSION
     Dosage: 25 MG TABLETS, 3 UNITS/DAY
     Route: 048
     Dates: start: 20080423, end: 20110423
  2. LEVOTHYROXINE SODIUM [Concomitant]
     Indication: HYPOTHYROIDISM
     Dosage: 25 MCG, 1 UNIT/DAY
     Route: 048
  3. COUMADIN [Concomitant]
     Dosage: 5 MG, 1 UNIT/DAY
     Route: 048
  4. LEVOPRAID [Concomitant]
     Dosage: UNK
  5. ALDACTONE [Suspect]
     Indication: HYPERTENSION
     Dosage: 25 MG, 1X/DAY
     Route: 048
     Dates: start: 20100423, end: 20110423
  6. RAMIPRIL [Suspect]
     Indication: HYPERTENSION
     Dosage: 5 MG, DAILY
     Route: 048
     Dates: start: 20080423, end: 20110423

REACTIONS (3)
  - ORTHOSTATIC HYPOTENSION [None]
  - FALL [None]
  - SYNCOPE [None]
